FAERS Safety Report 24294427 (Version 4)
Quarter: 2024Q4

REPORT INFORMATION
  Report Type: Spontaneous
  Country: FR (occurrence: FR)
  Receive Date: 20240906
  Receipt Date: 20241010
  Transmission Date: 20250115
  Serious: No
  Sender: MYLAN
  Company Number: FR-MYLANLABS-2024M1081274

PATIENT
  Sex: Male

DRUGS (1)
  1. EPIPEN [Suspect]
     Active Substance: EPINEPHRINE
     Indication: Anaphylactic shock
     Dosage: UNK
     Route: 065

REACTIONS (5)
  - Needle issue [Unknown]
  - Wrong technique in product usage process [Unknown]
  - Injury associated with device [Unknown]
  - Accidental exposure to product [Unknown]
  - Prescription drug used without a prescription [Unknown]
